FAERS Safety Report 23860979 (Version 3)
Quarter: 2024Q2

REPORT INFORMATION
  Report Type: Spontaneous
  Country: US (occurrence: US)
  Receive Date: 20240516
  Receipt Date: 20240611
  Transmission Date: 20240716
  Serious: Yes (Hospitalization, Other)
  Sender: FDA-Public Use
  Company Number: US-UCBSA-2024007223

PATIENT
  Age: 74 Year
  Sex: Male
  Weight: 115.65 kg

DRUGS (1)
  1. CIMZIA [Suspect]
     Active Substance: CERTOLIZUMAB PEGOL
     Indication: Ankylosing spondylitis
     Dosage: 400 MILLIGRAM, EV 4 WEEKS
     Route: 058
     Dates: start: 202108

REACTIONS (4)
  - COVID-19 [Unknown]
  - Thrombosis [Unknown]
  - Pneumonia [Unknown]
  - Localised infection [Unknown]

NARRATIVE: CASE EVENT DATE: 20240603
